FAERS Safety Report 8482069-0 (Version None)
Quarter: 2012Q3

REPORT INFORMATION
  Report Type: 
  Country: None (occurrence: None)
  Receive Date: 20120702
  Receipt Date: 20120620
  Transmission Date: 20120928
  Serious: No
  Sender: FDA-Public Use
  Company Number: US-ASTRAZENECA-2012SE41458

PATIENT
  Age: 69 Year
  Sex: Male
  Weight: 102.1 kg

DRUGS (2)
  1. NEXIUM [Suspect]
     Indication: ABDOMINAL DISCOMFORT
     Route: 048
  2. NEXIUM [Suspect]
     Indication: VOMITING
     Route: 048

REACTIONS (4)
  - VOMITING [None]
  - ABDOMINAL DISCOMFORT [None]
  - OFF LABEL USE [None]
  - DRUG INEFFECTIVE FOR UNAPPROVED INDICATION [None]
